FAERS Safety Report 4479884-7 (Version None)
Quarter: 2004Q3

REPORT INFORMATION
  Report Type: 
  Country: None (occurrence: None)
  Receive Date: 20040923
  Receipt Date: 20040527
  Transmission Date: 20050211
  Serious: No
  Sender: FDA-Public Use
  Company Number: USA040568058

PATIENT
  Age: 71 Year
  Sex: Female
  Weight: 65 kg

DRUGS (9)
  1. FORTEO [Suspect]
     Indication: OSTEOPOROSIS
     Dates: start: 20040501
  2. LIPITOR [Concomitant]
  3. ATIVAN [Concomitant]
  4. ZANTAC [Concomitant]
  5. TRAZODONE HCL [Concomitant]
  6. LANOXIN [Concomitant]
  7. POTASSIUM [Concomitant]
  8. MULTI-VITAMIN [Concomitant]
  9. TYLENOL [Concomitant]

REACTIONS (1)
  - ERYTHEMA [None]
